FAERS Safety Report 21043315 (Version 1)
Quarter: 2022Q3

REPORT INFORMATION
  Report Type: Other
  Country: US (occurrence: None)
  Receive Date: 20220705
  Receipt Date: 20220705
  Transmission Date: 20221027
  Serious: Yes (Other)
  Sender: FDA-Public Use
  Company Number: US-ROCHE-3127290

PATIENT
  Age: 63 Year
  Sex: Female
  Weight: 77.180 kg

DRUGS (20)
  1. OCREVUS [Suspect]
     Active Substance: OCRELIZUMAB
     Indication: Primary progressive multiple sclerosis
     Dosage: YES
     Route: 042
     Dates: start: 20211101
  2. OCREVUS [Suspect]
     Active Substance: OCRELIZUMAB
     Route: 042
  3. DUPIXENT [Concomitant]
     Active Substance: DUPILUMAB
  4. ZINC [Concomitant]
     Active Substance: ZINC
  5. AFRIN [Concomitant]
     Active Substance: OXYMETAZOLINE
  6. VOLTAREN [Concomitant]
     Active Substance: DICLOFENAC SODIUM
  7. MIRABEGRON [Concomitant]
     Active Substance: MIRABEGRON
  8. CLOBETASOL [Concomitant]
     Active Substance: CLOBETASOL
  9. OMEGA 3 [Concomitant]
     Active Substance: CAPSAICIN
  10. HERBALS\TURMERIC [Concomitant]
     Active Substance: HERBALS\TURMERIC
  11. MAGNESIUM [Concomitant]
     Active Substance: MAGNESIUM
  12. BIOTIN [Concomitant]
     Active Substance: BIOTIN
  13. SELENIUM [Concomitant]
     Active Substance: SELENIUM
  14. ASPIRIN [Concomitant]
     Active Substance: ASPIRIN
  15. ALEVE [Concomitant]
     Active Substance: NAPROXEN SODIUM
  16. CLARITIN-D 12 HOUR [Concomitant]
     Active Substance: LORATADINE\PSEUDOEPHEDRINE SULFATE
  17. DALFAMPRIDINE [Concomitant]
     Active Substance: DALFAMPRIDINE
  18. KLONOPIN [Concomitant]
     Active Substance: CLONAZEPAM
  19. CRESTOR [Concomitant]
     Active Substance: ROSUVASTATIN CALCIUM
  20. LOSARTAN [Concomitant]
     Active Substance: LOSARTAN

REACTIONS (5)
  - Fall [Recovered/Resolved]
  - Contusion [Recovered/Resolved]
  - Urinary tract infection [Recovering/Resolving]
  - Eczema [Recovering/Resolving]
  - Swelling [Recovering/Resolving]

NARRATIVE: CASE EVENT DATE: 20211115
